FAERS Safety Report 13416238 (Version 1)
Quarter: 2017Q2

REPORT INFORMATION
  Report Type: Spontaneous
  Country: FR (occurrence: FR)
  Receive Date: 20170407
  Receipt Date: 20170407
  Transmission Date: 20170830
  Serious: Yes (Other)
  Sender: FDA-Public Use
  Company Number: FR-ASTRAZENECA-2017SE35187

PATIENT
  Age: 693 Month
  Sex: Female

DRUGS (3)
  1. FASLODEX [Suspect]
     Active Substance: FULVESTRANT
     Indication: BREAST CANCER METASTATIC
     Route: 030
     Dates: start: 20120417
  2. AVASTIN [Suspect]
     Active Substance: BEVACIZUMAB
     Indication: BREAST CANCER METASTATIC
     Dosage: 15 MG/KG (15 MG/KG 1 IN 1 CYCLE)
     Route: 042
     Dates: start: 20111025
  3. PACLITAXEL. [Concomitant]
     Active Substance: PACLITAXEL
     Dosage: 80MG/M2, 1 IN 1 CYCLE
     Route: 042
     Dates: start: 20111018, end: 20120327

REACTIONS (3)
  - Carpal tunnel syndrome [Unknown]
  - Dysphonia [Unknown]
  - Peripheral sensory neuropathy [Unknown]

NARRATIVE: CASE EVENT DATE: 201208
